FAERS Safety Report 9147282 (Version 1)
Quarter: 2013Q1

REPORT INFORMATION
  Report Type: Spontaneous
  Country: CN (occurrence: CN)
  Receive Date: 20130307
  Receipt Date: 20130307
  Transmission Date: 20140127
  Serious: Yes (Other)
  Sender: FDA-Public Use
  Company Number: CN-ROCHE-1198623

PATIENT
  Age: 38 Year
  Sex: Male
  Weight: 66 kg

DRUGS (1)
  1. CEFTRIAXONE [Suspect]
     Indication: UPPER RESPIRATORY TRACT INFECTION
     Route: 042

REACTIONS (1)
  - Calculus ureteric [Recovered/Resolved]
